FAERS Safety Report 6837924-1 (Version None)
Quarter: 2010Q3

REPORT INFORMATION
  Report Type: 
  Country: None (occurrence: None)
  Receive Date: 20100713
  Receipt Date: 20070524
  Transmission Date: 20110219
  Serious: Yes (Other)
  Sender: FDA-Public Use
  Company Number: US-PFIZER INC-2007039891

PATIENT
  Sex: Female
  Weight: 70.5 kg

DRUGS (6)
  1. CHANTIX [Suspect]
     Indication: SMOKING CESSATION THERAPY
     Dates: start: 20070512
  2. BUSPAR [Concomitant]
  3. VITAMINS [Concomitant]
  4. ACIPHEX [Concomitant]
  5. ALL OTHER THERAPEUTIC PRODUCTS [Concomitant]
  6. AMBIEN [Concomitant]

REACTIONS (9)
  - ABNORMAL DREAMS [None]
  - DRY MOUTH [None]
  - FEELING ABNORMAL [None]
  - INSOMNIA [None]
  - NAUSEA [None]
  - NOCTURIA [None]
  - PARAESTHESIA [None]
  - PRESYNCOPE [None]
  - VISUAL IMPAIRMENT [None]
